FAERS Safety Report 12960334 (Version 2)
Quarter: 2016Q4

REPORT INFORMATION
  Report Type: Spontaneous
  Country: PL (occurrence: PL)
  Receive Date: 20161121
  Receipt Date: 20161202
  Transmission Date: 20170207
  Serious: Yes (Life-Threatening, Hospitalization)
  Sender: FDA-Public Use
  Company Number: PL-TEVA-713456ISR

PATIENT
  Age: 54 Year
  Sex: Female
  Weight: 52 kg

DRUGS (1)
  1. ZAMUR [Suspect]
     Active Substance: CEFUROXIME AXETIL
     Dosage: 500 MILLIGRAM DAILY;
     Route: 048

REACTIONS (1)
  - Anaphylactic shock [Recovered/Resolved with Sequelae]

NARRATIVE: CASE EVENT DATE: 201609
